FAERS Safety Report 18385049 (Version 1)
Quarter: 2020Q4

REPORT INFORMATION
  Report Type: Spontaneous
  Country: AU (occurrence: AU)
  Receive Date: 20201014
  Receipt Date: 20201014
  Transmission Date: 20210114
  Serious: Yes (Hospitalization)
  Sender: FDA-Public Use
  Company Number: AU-ROCHE-2693916

PATIENT
  Sex: Male

DRUGS (2)
  1. MABTHERA [Suspect]
     Active Substance: RITUXIMAB
     Indication: PRODUCT USED FOR UNKNOWN INDICATION
     Route: 065
     Dates: end: 202005
  2. TACROLIMUS. [Concomitant]
     Active Substance: TACROLIMUS
     Dates: end: 202008

REACTIONS (2)
  - Pancreatitis [Unknown]
  - Renal disorder [Unknown]
